FAERS Safety Report 10092268 (Version 1)
Quarter: 2014Q2

REPORT INFORMATION
  Report Type: Spontaneous
  Country: US (occurrence: US)
  Receive Date: 20140421
  Receipt Date: 20140421
  Transmission Date: 20141212
  Serious: No
  Sender: FDA-Public Use
  Company Number: US-SANOFI-AVENTIS-2013SA048184

PATIENT
  Age: 87 Year
  Sex: Female

DRUGS (1)
  1. ALLEGRA [Suspect]
     Indication: HYPERSENSITIVITY
     Dosage: TAKEN FROM -JUST STARTED ON IT^
     Route: 065

REACTIONS (4)
  - Nasal discomfort [Unknown]
  - Lacrimation increased [Unknown]
  - Sneezing [Unknown]
  - Extra dose administered [Unknown]
